FAERS Safety Report 6307754-8 (Version None)
Quarter: 2009Q3

REPORT INFORMATION
  Report Type: 
  Country: None (occurrence: None)
  Receive Date: 20090812
  Receipt Date: 20090812
  Transmission Date: 20100115
  Serious: No
  Sender: FDA-Public Use
  Company Number: None

PATIENT
  Sex: Female

DRUGS (2)
  1. LYRICA [Suspect]
     Indication: NEURALGIA
     Dosage: TK 1 TWICE A DAY PO
     Route: 048
     Dates: start: 20070101, end: 20080101
  2. LYRICA [Suspect]
     Indication: OFF LABEL USE
     Dosage: TK 1 TWICE A DAY PO
     Route: 048
     Dates: start: 20070101, end: 20080101

REACTIONS (4)
  - BLOOD GLUCOSE INCREASED [None]
  - TYPE 2 DIABETES MELLITUS [None]
  - VISION BLURRED [None]
  - WEIGHT INCREASED [None]
